FAERS Safety Report 14947290 (Version 1)
Quarter: 2018Q2

REPORT INFORMATION
  Report Type: Spontaneous
  Country: FR (occurrence: FR)
  Receive Date: 20180529
  Receipt Date: 20180529
  Transmission Date: 20180711
  Serious: Yes (Other)
  Sender: FDA-Public Use
  Company Number: FR-MERCK KGAA-2048586

PATIENT
  Age: 54 Year
  Sex: Female

DRUGS (1)
  1. NOVOTHYROX [Suspect]
     Active Substance: LEVOTHYROXINE SODIUM
     Indication: POST PROCEDURAL HYPOTHYROIDISM
     Dates: start: 2017

REACTIONS (25)
  - Myalgia [None]
  - Loss of personal independence in daily activities [None]
  - Social avoidant behaviour [None]
  - Fatigue [None]
  - Immobile [None]
  - Abdominal pain [None]
  - Fear of disease [None]
  - Vomiting [None]
  - Dizziness [None]
  - Arthralgia [None]
  - Decreased interest [None]
  - Histrionic personality disorder [None]
  - Muscle spasms [None]
  - Emotional disorder [None]
  - Dyspepsia [None]
  - Self esteem decreased [None]
  - Disorientation [None]
  - Marital problem [None]
  - General physical health deterioration [None]
  - Alopecia [None]
  - Asthenia [None]
  - Nausea [None]
  - Visual impairment [None]
  - Headache [None]
  - Sleep disorder [None]

NARRATIVE: CASE EVENT DATE: 201705
